FAERS Safety Report 22043289 (Version 1)
Quarter: 2023Q1

REPORT INFORMATION
  Report Type: Spontaneous
  Country: CA (occurrence: CA)
  Receive Date: 20230228
  Receipt Date: 20230228
  Transmission Date: 20230418
  Serious: Yes (Hospitalization, Other)
  Sender: FDA-Public Use
  Company Number: CA-JNJFOC-20230249408

PATIENT
  Age: 78 Year
  Sex: Female

DRUGS (3)
  1. SIMPONI [Suspect]
     Active Substance: GOLIMUMAB
     Indication: Polyarthritis
     Route: 041
  2. METHOTREXATE [Suspect]
     Active Substance: METHOTREXATE
     Indication: Polyarthritis
     Route: 065
  3. PREDNISONE [Suspect]
     Active Substance: PREDNISONE
     Indication: Polyarthritis
     Route: 065

REACTIONS (5)
  - Atrial fibrillation [Recovered/Resolved]
  - Mitral valve incompetence [Recovered/Resolved]
  - Tricuspid valve incompetence [Recovered/Resolved]
  - Aspergillus infection [Recovered/Resolved]
  - Off label use [Unknown]
